FAERS Safety Report 12167194 (Version 1)
Quarter: 2016Q1

REPORT INFORMATION
  Report Type: Spontaneous
  Country: EC (occurrence: None)
  Receive Date: 20160309
  Receipt Date: 20160309
  Transmission Date: 20160526
  Serious: No
  Sender: FDA-Public Use
  Company Number: None

PATIENT
  Age: 2 Year
  Sex: Male
  Weight: 12 kg

DRUGS (3)
  1. HEDERA HELIX [Concomitant]
     Active Substance: HEDERA HELIX FLOWERING TWIG
  2. MONTELUKAST MONTELUKAST 4MG MEDIGENER [Suspect]
     Active Substance: MONTELUKAST SODIUM
     Indication: INFLUENZA
     Dosage: MONTELUKAST 4MG 1 PILL ?AT BEDTIME?TAKEN BY MOUTH
     Route: 048
     Dates: start: 20160305, end: 20160308
  3. MONTELUKAST MONTELUKAST 4MG MEDIGENER [Suspect]
     Active Substance: MONTELUKAST SODIUM
     Indication: RHINITIS
     Dosage: MONTELUKAST 4MG 1 PILL ?AT BEDTIME?TAKEN BY MOUTH
     Route: 048
     Dates: start: 20160305, end: 20160308

REACTIONS (4)
  - Cough [None]
  - Pain [None]
  - Poor quality sleep [None]
  - Rhinorrhoea [None]

NARRATIVE: CASE EVENT DATE: 20160308
